FAERS Safety Report 10445312 (Version 3)
Quarter: 2014Q4

REPORT INFORMATION
  Report Type: Spontaneous
  Country: CA (occurrence: CA)
  Receive Date: 20140910
  Receipt Date: 20141007
  Transmission Date: 20150528
  Serious: Yes (Other)
  Sender: FDA-Public Use
  Company Number: CA-NAPPMUNDI-CAN-2014-0005162

PATIENT
  Sex: Male
  Weight: 61 kg

DRUGS (6)
  1. OXYNEO 40 MG [Suspect]
     Active Substance: OXYCODONE
     Indication: PAIN
     Dosage: 120 MG, QID
     Route: 048
     Dates: start: 2013
  2. OXYNEO 20 MG [Suspect]
     Active Substance: OXYCODONE
     Indication: PAIN
     Dosage: 20 MG, QID
     Route: 048
     Dates: start: 2013
  3. SENOKOT [Concomitant]
     Active Substance: SENNOSIDES
     Indication: CONSTIPATION
     Dosage: 3 TABLET, HS
     Route: 048
  4. APO-OXAZEPAM [Concomitant]
     Indication: INSOMNIA
     Dosage: 30 MG, HS
     Route: 065
  5. OXYNEO 40 MG [Suspect]
     Active Substance: OXYCODONE
     Dosage: 240 MG, QID
     Route: 048
     Dates: end: 20140822
  6. OXYNEO 20 MG [Suspect]
     Active Substance: OXYCODONE
     Dosage: 40 MG, QID
     Route: 048
     Dates: start: 2013, end: 20140822

REACTIONS (15)
  - Drug ineffective [Not Recovered/Not Resolved]
  - Decreased appetite [Not Recovered/Not Resolved]
  - Asthenia [Not Recovered/Not Resolved]
  - Vomiting [Not Recovered/Not Resolved]
  - Drug withdrawal syndrome [Unknown]
  - Bezoar [Not Recovered/Not Resolved]
  - Weight decreased [Not Recovered/Not Resolved]
  - Haemorrhage subepidermal [Not Recovered/Not Resolved]
  - Scar [Not Recovered/Not Resolved]
  - Skin irritation [Not Recovered/Not Resolved]
  - Pain of skin [Not Recovered/Not Resolved]
  - Drug hypersensitivity [Not Recovered/Not Resolved]
  - Abdominal pain upper [Not Recovered/Not Resolved]
  - Skin lesion [Recovering/Resolving]
  - Quality of life decreased [Not Recovered/Not Resolved]
